FAERS Safety Report 19981553 (Version 1)
Quarter: 2021Q4

REPORT INFORMATION
  Report Type: Spontaneous
  Country: CA (occurrence: CA)
  Receive Date: 20211022
  Receipt Date: 20211022
  Transmission Date: 20220303
  Serious: Yes (Other)
  Sender: FDA-Public Use
  Company Number: None

PATIENT
  Age: 27 Year
  Sex: Female

DRUGS (20)
  1. ERGOCALCIFEROL [Suspect]
     Active Substance: ERGOCALCIFEROL
     Indication: Product used for unknown indication
     Dosage: UNK
     Route: 065
  2. METFORMIN HYDROCHLORIDE [Suspect]
     Active Substance: METFORMIN HYDROCHLORIDE
     Indication: Type 2 diabetes mellitus
     Route: 065
  3. ASPIRIN [Suspect]
     Active Substance: ASPIRIN
     Indication: Prophylaxis
     Route: 065
  4. METHYLDOPA [Suspect]
     Active Substance: METHYLDOPA
     Indication: Hypertension
     Dosage: UNK
     Route: 065
  5. NIFEDIPINE [Suspect]
     Active Substance: NIFEDIPINE
     Indication: Hypertension
     Dosage: 60 MG, BID
     Route: 065
  6. NIFEDIPINE [Suspect]
     Active Substance: NIFEDIPINE
     Dosage: 20 MG, QD
     Route: 065
  7. NIFEDIPINE [Suspect]
     Active Substance: NIFEDIPINE
     Dosage: 20 MG, BID
     Route: 065
  8. CHLORHEXIDINE GLUCONATE [Suspect]
     Active Substance: CHLORHEXIDINE GLUCONATE
     Indication: Gingival hypertrophy
     Route: 065
  9. FOLIC ACID [Suspect]
     Active Substance: FOLIC ACID
     Indication: Product used for unknown indication
     Dosage: UNK
     Route: 065
  10. NICOTINIC ACID [Suspect]
     Active Substance: NIACIN
     Indication: Product used for unknown indication
     Dosage: UNK
     Route: 016
  11. DOCONEXENT\MINERALS\VITAMINS [Suspect]
     Active Substance: DOCONEXENT\MINERALS\VITAMINS
     Indication: Prophylaxis
     Dosage: UNK
     Route: 065
  12. DICLECTIN [Suspect]
     Active Substance: DOXYLAMINE SUCCINATE\PYRIDOXINE HYDROCHLORIDE
     Indication: Prophylaxis
     Dosage: UNKNOWN
     Route: 065
  13. INSULIN NOS [Suspect]
     Active Substance: INSULIN NOS
     Indication: Type 2 diabetes mellitus
     Dosage: UNKNOWN
  14. SILDENAFIL [Suspect]
     Active Substance: SILDENAFIL
     Indication: Foetal growth restriction
     Dosage: 20 MG, BID
  15. SILDENAFIL [Suspect]
     Active Substance: SILDENAFIL
     Indication: Foetal growth restriction
     Dosage: 30 MG, TID
     Route: 065
  16. SILDENAFIL [Suspect]
     Active Substance: SILDENAFIL
     Dosage: 20 MG, TID
     Route: 065
  17. VITAMIN A [Suspect]
     Active Substance: VITAMIN A
     Indication: Product used for unknown indication
     Dosage: UNKNOWN
     Route: 065
  18. PANTOTHENIC ACID [Suspect]
     Active Substance: PANTOTHENIC ACID
     Indication: Product used for unknown indication
     Dosage: UNKNOWN
     Route: 065
  19. VITAMIN C [Suspect]
     Active Substance: ASCORBIC ACID
     Indication: Product used for unknown indication
     Dosage: UNKNOWN
     Route: 065
  20. CHLORAPREP [Suspect]
     Active Substance: CHLORHEXIDINE GLUCONATE\ISOPROPYL ALCOHOL
     Indication: Product used for unknown indication
     Dosage: UNKNOWN
     Route: 065

REACTIONS (2)
  - Premature delivery [Unknown]
  - Maternal exposure during pregnancy [Unknown]
